FAERS Safety Report 24919904 (Version 1)
Quarter: 2025Q1

REPORT INFORMATION
  Report Type: Spontaneous
  Country: AU (occurrence: AU)
  Receive Date: 20250204
  Receipt Date: 20250204
  Transmission Date: 20250409
  Serious: No
  Sender: EXELIXIS
  Company Number: AU-IPSEN Group, Research and Development-2024-00261

PATIENT
  Sex: Male
  Weight: 71 kg

DRUGS (4)
  1. CABOMETYX [Suspect]
     Active Substance: CABOZANTINIB S-MALATE
     Indication: Metastatic renal cell carcinoma
     Dosage: 60 MG, QD
     Route: 048
  2. CABOMETYX [Suspect]
     Active Substance: CABOZANTINIB S-MALATE
     Dosage: 40 MG, QD
     Route: 048
     Dates: end: 20231223
  3. DENOSUMAB [Concomitant]
     Active Substance: DENOSUMAB
     Indication: Osteoporosis
     Route: 058
     Dates: start: 2021
  4. VITAMIN D [Concomitant]
     Active Substance: VITAMIN D NOS
     Indication: Osteoporosis
     Dosage: 1000 [IU], QD
     Route: 048
     Dates: start: 2021

REACTIONS (4)
  - Lethargy [Recovered/Resolved]
  - Gastrointestinal disorder [Recovered/Resolved]
  - Headache [Recovered/Resolved]
  - Drug intolerance [Unknown]
